FAERS Safety Report 7271610-1 (Version None)
Quarter: 2011Q1

REPORT INFORMATION
  Report Type: 
  Country: None (occurrence: None)
  Receive Date: 20110125
  Receipt Date: 20110125
  Transmission Date: 20110831
  Serious: Yes (Hospitalization)
  Sender: FDA-Public Use
  Company Number: None

PATIENT
  Age: 65 Year
  Sex: Male

DRUGS (7)
  1. ZOLADEX [Concomitant]
  2. AMLODINE [Concomitant]
  3. NOROC [Concomitant]
  4. PRILOSEC [Concomitant]
  5. CASODEX [Suspect]
     Indication: PROSTATE CANCER
     Dosage: DAILY BY MOUTH
  6. AUGMENTIN '125' [Concomitant]
  7. EVEROLIMUS 5MG TABS OR PLACEBO [Suspect]
     Indication: PROSTATE CANCER
     Dosage: TWO TABS DAILY BY MOUTH

REACTIONS (4)
  - PAIN [None]
  - INFECTION [None]
  - LOCAL SWELLING [None]
  - ABSCESS [None]
